FAERS Safety Report 20649669 (Version 4)
Quarter: 2022Q2

REPORT INFORMATION
  Report Type: Spontaneous
  Country: EE (occurrence: None)
  Receive Date: 20220329
  Receipt Date: 20220419
  Transmission Date: 20220721
  Serious: Yes (Hospitalization, Other)
  Sender: FDA-Public Use
  Company Number: 2022A127478

PATIENT
  Age: 33 Year
  Sex: Female
  Weight: 59 kg

DRUGS (8)
  1. FASENRA [Suspect]
     Active Substance: BENRALIZUMAB
     Indication: Asthma
     Route: 058
     Dates: start: 20181205, end: 20220203
  2. SYMBICORT [Concomitant]
     Active Substance: BUDESONIDE\FORMOTEROL FUMARATE DIHYDRATE
     Indication: Asthma
     Dosage: 1 DOSE X 2-4 MORE THAN 15 Y
     Route: 055
  3. VENTOLIN [Concomitant]
     Active Substance: ALBUTEROL SULFATE
     Dosage: 1,25-2,5 MG X 4 VIA NEBULIZER
     Route: 065
     Dates: start: 20220328
  4. ATROVENT [Concomitant]
     Active Substance: IPRATROPIUM BROMIDE
     Dosage: 0,125-0,25 DOSI X 4 VIA NEBULIZER
     Route: 065
     Dates: start: 20220328
  5. PULMICORT TURBUHALER [Concomitant]
     Active Substance: BUDESONIDE
     Dosage: 1000 MCG X 2 VIA NEBULIZER
     Route: 065
     Dates: start: 20220328
  6. PREDNISOLONE [Concomitant]
     Active Substance: PREDNISOLONE
     Dosage: 30 MG X 1
     Route: 048
     Dates: start: 20220329
  7. ASPIRIN [Concomitant]
     Active Substance: ASPIRIN
     Dosage: 150 MG IN THE EVENING
     Route: 048
  8. INCRUSE ELLIPTA [Concomitant]
     Active Substance: UMECLIDINIUM BROMIDE
     Dosage: 55 MCG X 1
     Route: 065
     Dates: start: 2017, end: 201905

REACTIONS (3)
  - Asthma [Unknown]
  - Abortion spontaneous [Unknown]
  - Exposure during pregnancy [Unknown]

NARRATIVE: CASE EVENT DATE: 20210617
